FAERS Safety Report 18581329 (Version 1)
Quarter: 2020Q4

REPORT INFORMATION
  Report Type: Spontaneous
  Country: US (occurrence: US)
  Receive Date: 20201204
  Receipt Date: 20201204
  Transmission Date: 20210114
  Serious: Yes (Other)
  Sender: FDA-Public Use
  Company Number: US-MYLANLABS-2020M1099644

PATIENT
  Age: 31 Year
  Sex: Male

DRUGS (6)
  1. CLONAZEPAM. [Suspect]
     Active Substance: CLONAZEPAM
     Indication: AMYOTROPHIC LATERAL SCLEROSIS
     Route: 065
  2. TIZANIDINE. [Suspect]
     Active Substance: TIZANIDINE
     Indication: AMYOTROPHIC LATERAL SCLEROSIS
     Route: 065
  3. LORAZEPAM. [Suspect]
     Active Substance: LORAZEPAM
     Indication: AMYOTROPHIC LATERAL SCLEROSIS
     Route: 065
  4. BACLOFEN. [Suspect]
     Active Substance: BACLOFEN
     Indication: AMYOTROPHIC LATERAL SCLEROSIS
     Route: 048
  5. DIAZEPAM. [Suspect]
     Active Substance: DIAZEPAM
     Indication: AMYOTROPHIC LATERAL SCLEROSIS
     Route: 065
  6. NABIXIMOLS [Concomitant]
     Active Substance: NABIXIMOLS
     Indication: AMYOTROPHIC LATERAL SCLEROSIS
     Route: 065

REACTIONS (1)
  - Treatment failure [Unknown]
